FAERS Safety Report 7056564-5 (Version None)
Quarter: 2010Q4

REPORT INFORMATION
  Report Type: 
  Country: None (occurrence: None)
  Receive Date: 20101018
  Receipt Date: 20101004
  Transmission Date: 20110411
  Serious: Yes (Hospitalization)
  Sender: FDA-Public Use
  Company Number: BR-001321

PATIENT
  Age: 24 Month
  Sex: Male

DRUGS (1)
  1. NAGLAZYME [Suspect]
     Indication: MUCOPOLYSACCHARIDOSIS VI
     Dosage: DOSING REGIMEN AND FREQUENCY NOT REPORTED INTRAVENOUS DIP
     Route: 042

REACTIONS (2)
  - DISEASE RECURRENCE [None]
  - HERNIA [None]
